FAERS Safety Report 15238967 (Version 1)
Quarter: 2018Q3

REPORT INFORMATION
  Report Type: Spontaneous
  Country: US (occurrence: US)
  Receive Date: 20180803
  Receipt Date: 20180803
  Transmission Date: 20181010
  Serious: No
  Sender: FDA-Public Use
  Company Number: US-TEVA-2018-US-937110

PATIENT
  Sex: Female

DRUGS (18)
  1. COPAXONE [Suspect]
     Active Substance: GLATIRAMER ACETATE
     Indication: MULTIPLE SCLEROSIS
     Route: 058
     Dates: start: 20180313
  2. ZINC. [Concomitant]
     Active Substance: ZINC
  3. VITAMIN E [Concomitant]
     Active Substance: .ALPHA.-TOCOPHEROL
  4. VITAMIN K [Concomitant]
     Active Substance: PHYTONADIONE
  5. LEVOTHYROXINE. [Concomitant]
     Active Substance: LEVOTHYROXINE
  6. SEROQUEL [Concomitant]
     Active Substance: QUETIAPINE FUMARATE
  7. VITAMIN D3 [Concomitant]
     Active Substance: CHOLECALCIFEROL
  8. COPPER [Concomitant]
     Active Substance: COPPER
  9. CALCIUM [Concomitant]
     Active Substance: CALCIUM
  10. XANAX XR [Concomitant]
     Active Substance: ALPRAZOLAM
  11. VITAMIN A [Concomitant]
     Active Substance: VITAMIN A
  12. VITAMIN B1 [Concomitant]
     Active Substance: THIAMINE HYDROCHLORIDE
  13. MULTIVITAMIN [Concomitant]
     Active Substance: VITAMINS
  14. TEMAZEPAM. [Concomitant]
     Active Substance: TEMAZEPAM
  15. TIZANIDINE. [Concomitant]
     Active Substance: TIZANIDINE
  16. PYRIDIUM [Concomitant]
     Active Substance: PHENAZOPYRIDINE
  17. VITAMIN C [Concomitant]
     Active Substance: ASCORBIC ACID
  18. MAGNESIUM [Concomitant]
     Active Substance: MAGNESIUM

REACTIONS (2)
  - Injection site reaction [Not Recovered/Not Resolved]
  - Fatigue [Not Recovered/Not Resolved]
